FAERS Safety Report 4500342-5 (Version None)
Quarter: 2004Q4

REPORT INFORMATION
  Report Type: 
  Country: None (occurrence: None)
  Receive Date: 20041112
  Receipt Date: 20041102
  Transmission Date: 20050328
  Serious: Yes (Life-Threatening, Hospitalization)
  Sender: FDA-Public Use
  Company Number: US-MERCK-0411USA00427

PATIENT
  Age: 78 Year
  Sex: Female

DRUGS (2)
  1. VIOXX [Suspect]
     Indication: KNEE ARTHROPLASTY
     Route: 048
     Dates: start: 20000101
  2. VIOXX [Suspect]
     Indication: ARTHRALGIA
     Route: 048
     Dates: start: 20000101

REACTIONS (2)
  - CEREBROVASCULAR ACCIDENT [None]
  - MYOCARDIAL INFARCTION [None]
